FAERS Safety Report 8531175-0 (Version None)
Quarter: 2012Q3

REPORT INFORMATION
  Report Type: 
  Country: None (occurrence: None)
  Receive Date: 20120723
  Receipt Date: 20120709
  Transmission Date: 20120928
  Serious: Yes (Hospitalization)
  Sender: FDA-Public Use
  Company Number: US-ELI_LILLY_AND_COMPANY-US201207003206

PATIENT
  Age: 72 Year
  Sex: Female

DRUGS (8)
  1. BENICAR [Concomitant]
  2. OLANZAPINE [Suspect]
     Indication: THINKING ABNORMAL
     Dosage: 2.5 MG, UNK
     Dates: start: 20120627
  3. NORVASC [Concomitant]
  4. SYNTHROID [Concomitant]
  5. LOVAZA [Concomitant]
  6. ZYPREXA ZYDIS [Concomitant]
     Dosage: 5 MG, UNK
  7. ZYPREXA ZYDIS [Concomitant]
     Indication: THINKING ABNORMAL
     Dosage: 5 MG, UNK
  8. ATENOLOL [Concomitant]

REACTIONS (4)
  - MUSCLE TWITCHING [None]
  - DRY MOUTH [None]
  - DYSPHAGIA [None]
  - DELUSION [None]
